FAERS Safety Report 7518446-1 (Version None)
Quarter: 2011Q2

REPORT INFORMATION
  Report Type: 
  Country: None (occurrence: None)
  Receive Date: 20110602
  Receipt Date: 20110520
  Transmission Date: 20111010
  Serious: Yes (Hospitalization)
  Sender: FDA-Public Use
  Company Number: FR-JNJFOC-20110511898

PATIENT
  Sex: Male

DRUGS (1)
  1. ACETAMINOPHEN AND TRAMADOL HCL [Suspect]
     Indication: BACK PAIN
     Route: 048
     Dates: start: 20110426, end: 20110429

REACTIONS (7)
  - SALIVARY HYPERSECRETION [None]
  - DELUSION [None]
  - WITHDRAWAL SYNDROME [None]
  - DEPRESSION [None]
  - AMNESIA [None]
  - EMOTIONAL POVERTY [None]
  - TREMOR [None]
